FAERS Safety Report 24807917 (Version 2)
Quarter: 2025Q1

REPORT INFORMATION
  Report Type: Spontaneous
  Country: US (occurrence: US)
  Receive Date: 20250106
  Receipt Date: 20250107
  Transmission Date: 20250409
  Serious: No
  Sender: Haleon PLC
  Company Number: US-HALEON-2220240

PATIENT
  Sex: Male

DRUGS (1)
  1. LAMISIL [Suspect]
     Active Substance: TERBINAFINE HYDROCHLORIDE
     Indication: Tinea pedis
     Dosage: EXPDATE:20260630 THE DURATION OF THE TREATMENT WITH LAMISIL CREAM WAS UNKNOWN;  1% CREAM 30G
     Route: 061
     Dates: start: 20241230, end: 20250101

REACTIONS (3)
  - Pruritus [Unknown]
  - Vision blurred [Unknown]
  - Paraesthesia [Unknown]
